FAERS Safety Report 22303977 (Version 1)
Quarter: 2023Q2

REPORT INFORMATION
  Report Type: Spontaneous
  Country: CN (occurrence: CN)
  Receive Date: 20230510
  Receipt Date: 20230510
  Transmission Date: 20230721
  Serious: Yes (Other)
  Sender: FDA-Public Use
  Company Number: CN-PFIZER INC-PV202300081681

PATIENT
  Age: 24 Year
  Sex: Female
  Weight: 44.4 kg

DRUGS (5)
  1. CYTARABINE [Suspect]
     Active Substance: CYTARABINE
     Indication: Autologous haematopoietic stem cell transplant
     Dosage: 0.05 G, 1X/DAY
     Route: 037
     Dates: start: 20230426, end: 20230426
  2. DEXAMETHASONE SODIUM PHOSPHATE [Suspect]
     Active Substance: DEXAMETHASONE SODIUM PHOSPHATE
     Indication: Autologous haematopoietic stem cell transplant
     Dosage: 5 MG, 1X/DAY
     Route: 037
     Dates: start: 20230426, end: 20230426
  3. METHOTREXATE [Suspect]
     Active Substance: METHOTREXATE
     Indication: Autologous haematopoietic stem cell transplant
     Dosage: 10 MG, 1X/DAY
     Route: 037
     Dates: start: 20230426, end: 20230426
  4. SODIUM CHLORIDE [Concomitant]
     Active Substance: SODIUM CHLORIDE
     Indication: Autologous haematopoietic stem cell transplant
     Dosage: 6 ML, 1X/DAY
     Route: 037
     Dates: start: 20230426, end: 20230426
  5. STERILE WATER [Concomitant]
     Active Substance: WATER
     Indication: Autologous haematopoietic stem cell transplant
     Dosage: 2 ML, 1X/DAY
     Route: 037
     Dates: start: 20230426, end: 20230426

REACTIONS (4)
  - Hypoaesthesia [Recovered/Resolved]
  - Agitation [Recovered/Resolved]
  - Crying [Recovered/Resolved]
  - Off label use [Unknown]

NARRATIVE: CASE EVENT DATE: 20230426
